FAERS Safety Report 24437323 (Version 1)
Quarter: 2024Q4

REPORT INFORMATION
  Report Type: Spontaneous
  Country: US (occurrence: None)
  Receive Date: 20241011
  Receipt Date: 20241011
  Transmission Date: 20250115
  Serious: No
  Sender: Public
  Company Number: None

PATIENT
  Age: 63 Year
  Sex: Male
  Weight: 91 kg

DRUGS (1)
  1. RITUXIMAB-PVVR [Suspect]
     Active Substance: RITUXIMAB-PVVR
     Indication: Thrombocytopenic purpura
     Dosage: OTHER FREQUENCY : ONCE;?
     Route: 042
     Dates: start: 20240708, end: 20240708

REACTIONS (5)
  - Chills [None]
  - Hypertension [None]
  - Nausea [None]
  - Tremor [None]
  - Tachycardia [None]

NARRATIVE: CASE EVENT DATE: 20240708
